FAERS Safety Report 6818128-5 (Version None)
Quarter: 2010Q3

REPORT INFORMATION
  Report Type: 
  Country: None (occurrence: None)
  Receive Date: 20100706
  Receipt Date: 20100624
  Transmission Date: 20110219
  Serious: Yes (Hospitalization)
  Sender: FDA-Public Use
  Company Number: US-ASTRAZENECA-2010SE29599

PATIENT
  Age: 35 Year
  Sex: Male
  Weight: 95.7 kg

DRUGS (7)
  1. NEXIUM [Suspect]
     Indication: GASTROOESOPHAGEAL REFLUX DISEASE
     Route: 048
  2. TOPROL-XL [Suspect]
     Indication: HYPERTENSION
     Route: 048
     Dates: start: 20070101
  3. SEROQUEL [Suspect]
     Indication: SCHIZOAFFECTIVE DISORDER BIPOLAR TYPE
     Route: 048
     Dates: start: 20070101, end: 20080201
  4. SEROQUEL [Suspect]
     Route: 048
     Dates: start: 20090101
  5. LITHIUM CARBONATE [Concomitant]
  6. CLONAZEPAM [Concomitant]
  7. PROPHENAZINE [Concomitant]

REACTIONS (10)
  - BLOOD GLUCOSE INCREASED [None]
  - CANDIDIASIS [None]
  - DYSPHAGIA [None]
  - FASCIITIS [None]
  - GASTROOESOPHAGEAL REFLUX DISEASE [None]
  - HEMIPARESIS [None]
  - HYPERTENSION [None]
  - HYPOAESTHESIA [None]
  - INSOMNIA [None]
  - PNEUMONIA ASPIRATION [None]
